FAERS Safety Report 8876619 (Version 1)
Quarter: 2012Q4

REPORT INFORMATION
  Report Type: 
  Country: US (occurrence: US)
  Receive Date: 20121029
  Receipt Date: 20121029
  Transmission Date: 20130627
  Serious: Yes (Other)
  Sender: FDA-Public Use
  Company Number: US-SANOFI-AVENTIS-2012SA076229

PATIENT
  Age: 79 Year
  Sex: Female

DRUGS (2)
  1. MULTAQ [Suspect]
     Indication: TACHYCARDIA
     Route: 048
     Dates: start: 2012
  2. MULTAQ [Suspect]
     Indication: CEREBROVASCULAR ACCIDENT PROPHYLAXIS
     Route: 048
     Dates: start: 2012

REACTIONS (2)
  - Urinary tract infection [Not Recovered/Not Resolved]
  - Off label use [Unknown]
